FAERS Safety Report 6066852-7 (Version None)
Quarter: 2009Q1

REPORT INFORMATION
  Report Type: 
  Country: None (occurrence: None)
  Receive Date: 20090205
  Receipt Date: 20090129
  Transmission Date: 20090719
  Serious: Yes (Hospitalization, Other)
  Sender: FDA-Public Use
  Company Number: US-JNJFOC-20060402001

PATIENT
  Sex: Male
  Weight: 158.76 kg

DRUGS (9)
  1. RISPERDAL [Suspect]
     Indication: MENTAL DISORDER
  2. RISPERDAL CONSTA [Suspect]
     Indication: DRUG USE FOR UNKNOWN INDICATION
     Route: 050
  3. SEROQUEL [Suspect]
     Indication: DRUG USE FOR UNKNOWN INDICATION
  4. ZYPREXA [Suspect]
     Indication: DRUG USE FOR UNKNOWN INDICATION
  5. HALDOL [Concomitant]
  6. ATIVAN [Concomitant]
  7. DEPAKOTE [Concomitant]
  8. ATENOLOL [Concomitant]
  9. COGENTIN [Concomitant]

REACTIONS (1)
  - TYPE 2 DIABETES MELLITUS [None]
